FAERS Safety Report 14320868 (Version 1)
Quarter: 2017Q4

REPORT INFORMATION
  Report Type: Other
  Country: ES (occurrence: ES)
  Receive Date: 20171223
  Receipt Date: 20171223
  Transmission Date: 20180321
  Serious: Yes (Other)
  Sender: FDA-Public Use
  Company Number: ES-GLENMARK PHARMACEUTICALS-2017GMK030145

PATIENT

DRUGS (1)
  1. MONTELUKAST SODIUM. [Suspect]
     Active Substance: MONTELUKAST SODIUM
     Indication: ASTHMA
     Dosage: 4 MG, 24 HOURS (MEDICATION ERROR)
     Route: 048
     Dates: start: 201706, end: 201711

REACTIONS (3)
  - Drug ineffective [Unknown]
  - Asthma [Recovered/Resolved]
  - Incorrect drug administration duration [Recovered/Resolved]

NARRATIVE: CASE EVENT DATE: 201706
